FAERS Safety Report 17946843 (Version 1)
Quarter: 2020Q2

REPORT INFORMATION
  Report Type: Spontaneous
  Country: FR (occurrence: FR)
  Receive Date: 20200625
  Receipt Date: 20200625
  Transmission Date: 20200714
  Serious: Yes (Hospitalization)
  Sender: FDA-Public Use
  Company Number: NVSC2020FR177012

PATIENT
  Age: 54 Year
  Sex: Male
  Weight: 87 kg

DRUGS (7)
  1. PREDNISOLONE. [Suspect]
     Active Substance: PREDNISOLONE
     Indication: CAVERNOUS SINUS SYNDROME
     Dosage: 20 MG, QD
     Route: 048
     Dates: start: 20190706, end: 20191129
  2. ATORVASTATINE [Concomitant]
     Active Substance: ATORVASTATIN
     Indication: PRODUCT USED FOR UNKNOWN INDICATION
     Route: 065
  3. KARDEGIC [Concomitant]
     Active Substance: ASPIRIN DL-LYSINE
     Indication: PRODUCT USED FOR UNKNOWN INDICATION
     Route: 065
  4. METHYLPREDNISOLONE MYLAN [Suspect]
     Active Substance: METHYLPREDNISOLONE
     Indication: CAVERNOUS SINUS SYNDROME
     Dosage: 1 G, QD
     Route: 042
     Dates: start: 20190703, end: 20190705
  5. PREGABALINE [Concomitant]
     Active Substance: PREGABALIN
     Indication: PRODUCT USED FOR UNKNOWN INDICATION
     Route: 065
  6. RAMIPRIL. [Concomitant]
     Active Substance: RAMIPRIL
     Indication: PRODUCT USED FOR UNKNOWN INDICATION
     Route: 065
  7. BISOCE [Concomitant]
     Active Substance: BISOPROLOL
     Indication: PRODUCT USED FOR UNKNOWN INDICATION
     Route: 065

REACTIONS (3)
  - Weight increased [Not Recovered/Not Resolved]
  - Myalgia [Not Recovered/Not Resolved]
  - Type 2 diabetes mellitus [Recovering/Resolving]

NARRATIVE: CASE EVENT DATE: 20191122
